FAERS Safety Report 23250850 (Version 1)
Quarter: 2023Q4

REPORT INFORMATION
  Report Type: Spontaneous
  Country: US (occurrence: None)
  Receive Date: 20231130
  Receipt Date: 20231130
  Transmission Date: 20240109
  Serious: Yes (Death)
  Sender: FDA-Public Use
  Company Number: None

PATIENT
  Age: 49 Year
  Sex: Male
  Weight: 87.4 kg

DRUGS (10)
  1. SULFUR HEXAFLUORIDE [Suspect]
     Active Substance: SULFUR HEXAFLUORIDE
     Indication: Echocardiogram
     Dosage: OTHER FREQUENCY : ONCE;?
     Route: 042
     Dates: start: 20231114, end: 20231114
  2. Sacubitril-valsartan [Concomitant]
  3. EMPAGLIFLOZIN [Concomitant]
  4. PRASUGREL [Concomitant]
  5. NITROGLYCERIN [Concomitant]
  6. FUROSEMIDE [Concomitant]
  7. metoprolol succinate er [Concomitant]
  8. ranolizine er [Concomitant]
  9. ROSUVASTATIN [Concomitant]
  10. SPIRONOLACTONE [Concomitant]

REACTIONS (6)
  - Cardio-respiratory arrest [None]
  - Feeling hot [None]
  - Hyperhidrosis [None]
  - Retching [None]
  - Vomiting [None]
  - Pulse absent [None]

NARRATIVE: CASE EVENT DATE: 20231114
